FAERS Safety Report 25708097 (Version 1)
Quarter: 2025Q3

REPORT INFORMATION
  Report Type: Spontaneous
  Country: US (occurrence: US)
  Receive Date: 20250820
  Receipt Date: 20250820
  Transmission Date: 20251020
  Serious: Yes (Other)
  Sender: ELI LILLY AND COMPANY
  Company Number: US-ELI_LILLY_AND_COMPANY-US202508008883

PATIENT
  Age: 23 Year
  Sex: Female

DRUGS (2)
  1. EMGALITY [Suspect]
     Active Substance: GALCANEZUMAB-GNLM
     Indication: Migraine
     Route: 065
  2. EMGALITY [Suspect]
     Active Substance: GALCANEZUMAB-GNLM
     Indication: Migraine
     Route: 065

REACTIONS (9)
  - Loss of consciousness [Unknown]
  - Migraine-triggered seizure [Unknown]
  - Stress [Unknown]
  - Asthenopia [Unknown]
  - Vision blurred [Unknown]
  - Dysarthria [Unknown]
  - Hangover [Unknown]
  - Attention deficit hyperactivity disorder [Unknown]
  - Inappropriate schedule of product administration [Unknown]

NARRATIVE: CASE EVENT DATE: 20250808
